FAERS Safety Report 5781431-4 (Version None)
Quarter: 2008Q2

REPORT INFORMATION
  Report Type: 
  Country: None (occurrence: None)
  Receive Date: 20080623
  Receipt Date: 20070802
  Transmission Date: 20081010
  Serious: No
  Sender: FDA-Public Use
  Company Number: US-ASTRAZENECA-2007UW18623

PATIENT
  Age: 36 Year
  Sex: Male

DRUGS (6)
  1. ENTOCORT EC [Suspect]
     Indication: DIVERTICULITIS
     Route: 048
  2. ENTOCORT EC [Suspect]
     Route: 048
  3. ENTOCORT EC [Suspect]
     Route: 048
     Dates: start: 20070701
  4. ASACOL [Concomitant]
  5. NORVASC [Concomitant]
  6. LIPITOR [Concomitant]

REACTIONS (3)
  - BLOOD TESTOSTERONE DECREASED [None]
  - INFERTILITY MALE [None]
  - SPERM COUNT DECREASED [None]
